FAERS Safety Report 5703996-0 (Version None)
Quarter: 2008Q2

REPORT INFORMATION
  Report Type: 
  Country: None (occurrence: None)
  Receive Date: 20080414
  Receipt Date: 20080404
  Transmission Date: 20081010
  Serious: Yes (Hospitalization, Other)
  Sender: FDA-Public Use
  Company Number: ES-JNJFOC-20080200870

PATIENT
  Age: 72 Year
  Sex: Male
  Weight: 65 kg

DRUGS (7)
  1. REMICADE [Suspect]
     Dosage: 20TH INFUSION
     Route: 042
  2. REMICADE [Suspect]
     Dosage: TOTAL OF 20 DOSES
     Route: 042
  3. REMICADE [Suspect]
     Dosage: DURING MAINTENANCE PHASE
     Route: 042
  4. REMICADE [Suspect]
     Indication: RHEUMATOID ARTHRITIS
     Route: 042
  5. METHOTREXATE [Concomitant]
  6. FOLIC ACID [Concomitant]
  7. DEZACOR [Concomitant]

REACTIONS (2)
  - CHRONIC LYMPHOCYTIC LEUKAEMIA [None]
  - THROMBOTIC THROMBOCYTOPENIC PURPURA [None]
